FAERS Safety Report 17688511 (Version 1)
Quarter: 2020Q2

REPORT INFORMATION
  Report Type: Spontaneous
  Country: JP (occurrence: JP)
  Receive Date: 20200421
  Receipt Date: 20200421
  Transmission Date: 20200714
  Serious: Yes (Other)
  Sender: FDA-Public Use
  Company Number: JP-OTSUKA-2020_009943

PATIENT
  Age: 35 Year
  Sex: Male

DRUGS (8)
  1. EFFEXOR [Suspect]
     Active Substance: VENLAFAXINE HYDROCHLORIDE
     Dosage: UNK UNK, 1X/DAY (75)
     Route: 048
     Dates: start: 20190807, end: 20190910
  2. EFFEXOR [Suspect]
     Active Substance: VENLAFAXINE HYDROCHLORIDE
     Dosage: UNK, 1X/DAY (37.5)
     Route: 048
     Dates: start: 20190221, end: 20190227
  3. ABILIFY [Suspect]
     Active Substance: ARIPIPRAZOLE
     Indication: DEPRESSION
     Dosage: UNK UNK, 1X/DAY (1.5)
     Route: 048
     Dates: start: 20191128
  4. EFFEXOR [Suspect]
     Active Substance: VENLAFAXINE HYDROCHLORIDE
     Dosage: 112.5, 1X/DAY; ORAL
     Route: 048
     Dates: start: 20190404, end: 20190806
  5. EFFEXOR [Suspect]
     Active Substance: VENLAFAXINE HYDROCHLORIDE
     Dosage: 75 ONCE DAILY
     Route: 065
     Dates: start: 20190228, end: 20190403
  6. EFFEXOR [Suspect]
     Active Substance: VENLAFAXINE HYDROCHLORIDE
     Dosage: 37.5, 1X/DAY
     Route: 048
     Dates: start: 20190911, end: 20191001
  7. EFFEXOR [Suspect]
     Active Substance: VENLAFAXINE HYDROCHLORIDE
     Dosage: UNK, 1X/DAY (112.5)
     Route: 048
     Dates: start: 20191002, end: 20191225
  8. EFFEXOR [Suspect]
     Active Substance: VENLAFAXINE HYDROCHLORIDE
     Indication: DEPRESSION
     Dosage: 37.5, 1X/DAY
     Route: 048
     Dates: start: 20191226, end: 20191231

REACTIONS (3)
  - Bipolar disorder [Recovered/Resolved]
  - Withdrawal syndrome [Unknown]
  - Mania [Recovered/Resolved]

NARRATIVE: CASE EVENT DATE: 201912
